FAERS Safety Report 7271982-8 (Version None)
Quarter: 2011Q1

REPORT INFORMATION
  Report Type: 
  Country: None (occurrence: None)
  Receive Date: 20110131
  Receipt Date: 20110131
  Transmission Date: 20110831
  Serious: Yes (Hospitalization)
  Sender: FDA-Public Use
  Company Number: None

PATIENT
  Sex: Male
  Weight: 160.1197 kg

DRUGS (1)
  1. NORDITROPIN NORDIFLEX [Suspect]
     Dosage: 0.3MG SC QD
     Route: 058

REACTIONS (2)
  - KNEE ARTHROPLASTY [None]
  - DEVICE RELATED INFECTION [None]
